FAERS Safety Report 22205563 (Version 6)
Quarter: 2025Q2

REPORT INFORMATION
  Report Type: Report from Study
  Country: US (occurrence: US)
  Receive Date: 20230413
  Receipt Date: 20250415
  Transmission Date: 20250717
  Serious: Yes (Other)
  Sender: TAKEDA
  Company Number: US-TAKEDA-2023TUS037520

PATIENT
  Age: 21 Year
  Sex: Male

DRUGS (5)
  1. ADVATE [Suspect]
     Active Substance: ANTIHEMOPHILIC FACTOR, HUMAN RECOMBINANT
     Indication: Haemorrhage
  2. ADVATE [Suspect]
     Active Substance: ANTIHEMOPHILIC FACTOR, HUMAN RECOMBINANT
     Dosage: 4555 INTERNATIONAL UNIT, 3/WEEK
  3. ADVATE [Suspect]
     Active Substance: ANTIHEMOPHILIC FACTOR, HUMAN RECOMBINANT
     Dosage: 4555 INTERNATIONAL UNIT, 3/WEEK
  4. ADVATE [Suspect]
     Active Substance: ANTIHEMOPHILIC FACTOR, HUMAN RECOMBINANT
     Dosage: 4460 INTERNATIONAL UNIT, 3/WEEK
  5. ADVATE [Suspect]
     Active Substance: ANTIHEMOPHILIC FACTOR, HUMAN RECOMBINANT
     Dosage: 4460 INTERNATIONAL UNIT, 3/WEEK

REACTIONS (7)
  - Epistaxis [Unknown]
  - Haemarthrosis [Recovered/Resolved]
  - Blood urine present [Unknown]
  - Peripheral swelling [Unknown]
  - Road traffic accident [Unknown]
  - Joint injury [Unknown]
  - Haematuria [Unknown]

NARRATIVE: CASE EVENT DATE: 20230411
